FAERS Safety Report 4537698-3 (Version None)
Quarter: 2004Q4

REPORT INFORMATION
  Report Type: 
  Country: None (occurrence: None)
  Receive Date: 20041216
  Receipt Date: 20031118
  Transmission Date: 20050328
  Serious: Yes (Other)
  Sender: FDA-Public Use
  Company Number: HQWYE188519NOV03

PATIENT
  Age: 28 Year
  Sex: Female
  Weight: 61.29 kg

DRUGS (3)
  1. EFFEXOR XR [Suspect]
     Indication: ANXIETY
     Dosage: 150 MG 1X PER 1 DAY, ORAL
     Route: 048
     Dates: start: 20030801
  2. EFFEXOR XR [Suspect]
     Indication: DEPRESSION
     Dosage: 150 MG 1X PER 1 DAY, ORAL
     Route: 048
     Dates: start: 20030801
  3. ALCOHOL (ETHANOL) [Concomitant]

REACTIONS (2)
  - ALCOHOLISM [None]
  - LOSS OF CONSCIOUSNESS [None]
